FAERS Safety Report 5109031-X (Version None)
Quarter: 2006Q3

REPORT INFORMATION
  Report Type: 
  Country: None (occurrence: None)
  Receive Date: 20060918
  Receipt Date: 20060905
  Transmission Date: 20061208
  Serious: Yes (Hospitalization, Other)
  Sender: FDA-Public Use
  Company Number: HQWYE420107SEP06

PATIENT
  Age: 34 Year
  Sex: Female

DRUGS (1)
  1. RAPAMUNE [Suspect]
     Indication: IMMUNOSUPPRESSANT DRUG THERAPY
     Dates: start: 20030101, end: 20050101

REACTIONS (10)
  - ALVEOLAR PROTEINOSIS [None]
  - ANAEMIA [None]
  - BLOOD CREATININE INCREASED [None]
  - CHEST PAIN [None]
  - DYSPNOEA [None]
  - HYPOXIA [None]
  - LOW DENSITY LIPOPROTEIN INCREASED [None]
  - PULMONARY TOXICITY [None]
  - PYREXIA [None]
  - RESTRICTIVE PULMONARY DISEASE [None]
